FAERS Safety Report 18958229 (Version 1)
Quarter: 2021Q1

REPORT INFORMATION
  Report Type: Spontaneous
  Country: US (occurrence: US)
  Receive Date: 20210302
  Receipt Date: 20210302
  Transmission Date: 20210420
  Serious: No
  Sender: FDA-Public Use
  Company Number: None

PATIENT

DRUGS (2)
  1. 0.9% SODIUM CHLORIDE VIAL [Suspect]
     Active Substance: SODIUM CHLORIDE
     Route: 042
  2. POTASSIUM PHOSPHATES [Suspect]
     Active Substance: POTASSIUM PHOSPHATE, DIBASIC\POTASSIUM PHOSPHATE, MONOBASIC
     Route: 042

REACTIONS (2)
  - Product packaging confusion [None]
  - Physical product label issue [None]
